FAERS Safety Report 6902836-1 (Version None)
Quarter: 2010Q3

REPORT INFORMATION
  Report Type: 
  Country: None (occurrence: None)
  Receive Date: 20100803
  Receipt Date: 20080816
  Transmission Date: 20110219
  Serious: No
  Sender: FDA-Public Use
  Company Number: US-PFIZER INC-2008044045

PATIENT
  Sex: Female
  Weight: 99.1 kg

DRUGS (9)
  1. LYRICA [Suspect]
     Indication: FIBROMYALGIA
     Dates: start: 20080301
  2. DOXEPIN HCL [Concomitant]
     Route: 048
     Dates: start: 20080424
  3. XANAX [Concomitant]
     Route: 048
  4. QUINAPRIL [Concomitant]
     Route: 048
  5. OXYCONTIN [Concomitant]
     Route: 048
  6. PERCOCET [Concomitant]
     Route: 048
  7. CELEXA [Concomitant]
     Route: 048
  8. LASIX [Concomitant]
     Route: 048
  9. POTASSIUM [Concomitant]
     Route: 048

REACTIONS (2)
  - DRUG INEFFECTIVE [None]
  - VISION BLURRED [None]
